FAERS Safety Report 18478279 (Version 8)
Quarter: 2021Q1

REPORT INFORMATION
  Report Type: Spontaneous
  Country: CA (occurrence: CA)
  Receive Date: 20201109
  Receipt Date: 20210312
  Transmission Date: 20210419
  Serious: Yes (Hospitalization, Other)
  Sender: FDA-Public Use
  Company Number: CA-CELLTRION INC.-2020CA030823

PATIENT

DRUGS (13)
  1. INFLECTRA [Suspect]
     Active Substance: INFLIXIMAB-DYYB
     Dosage: 400 MG AT 0, 1, 2 AND 6, THEN EVERY MONTH
     Route: 042
     Dates: start: 20201106
  2. INFLECTRA [Suspect]
     Active Substance: INFLIXIMAB-DYYB
     Dosage: 400 MG, MONTHLY
     Route: 042
     Dates: start: 20210303
  3. MEZAVANT [Concomitant]
     Active Substance: MESALAMINE
     Dosage: UNK
     Route: 065
  4. PREDNISONE. [Concomitant]
     Active Substance: PREDNISONE
     Dosage: 40 MG, TAPER 5 MG WEEKLY
     Route: 048
     Dates: start: 202010
  5. INFLECTRA [Suspect]
     Active Substance: INFLIXIMAB-DYYB
     Dosage: 400 MG, MONTHLY
     Route: 042
     Dates: start: 20210105
  6. METHOTREXATE. [Concomitant]
     Active Substance: METHOTREXATE
     Dosage: 1 DF
     Route: 065
     Dates: start: 202010
  7. PREDNISONE. [Concomitant]
     Active Substance: PREDNISONE
     Dosage: 40 MG
     Route: 048
  8. INFLECTRA [Suspect]
     Active Substance: INFLIXIMAB-DYYB
     Dosage: 400 MG, MONTHLY
     Route: 042
     Dates: start: 20210202
  9. METHOTREXATE. [Concomitant]
     Active Substance: METHOTREXATE
     Dosage: 1 DF, WEEKLY
     Route: 065
     Dates: start: 202010
  10. PREDNISONE. [Concomitant]
     Active Substance: PREDNISONE
     Dosage: 40 MG, WEEKLY, TAPERING DOSE
     Route: 048
     Dates: start: 202010
  11. INFLECTRA [Suspect]
     Active Substance: INFLIXIMAB-DYYB
     Dosage: 400 MG AT 0, 1, 2 AND 6, THEN EVERY MONTH
     Route: 042
     Dates: start: 20201205
  12. INFLECTRA [Suspect]
     Active Substance: INFLIXIMAB-DYYB
     Indication: COLITIS ULCERATIVE
     Dosage: FIRST 2 DOSES IN HOSPITAL
     Dates: start: 2020
  13. PREDNISONE. [Concomitant]
     Active Substance: PREDNISONE
     Dosage: 40?60 MG , DAILY FOR A MINIMUM OF 14 DAYS
     Route: 048

REACTIONS (9)
  - Intentional product use issue [Unknown]
  - Off label use [Unknown]
  - Blood pressure increased [Unknown]
  - Clostridium difficile infection [Unknown]
  - Body temperature increased [Unknown]
  - Condition aggravated [Recovering/Resolving]
  - Fatigue [Unknown]
  - Weight increased [Unknown]
  - Weight decreased [Recovered/Resolved]

NARRATIVE: CASE EVENT DATE: 2020
